FAERS Safety Report 5257796-9 (Version None)
Quarter: 2007Q1

REPORT INFORMATION
  Report Type: 
  Country: None (occurrence: None)
  Receive Date: 20070302
  Receipt Date: 20070214
  Transmission Date: 20070707
  Serious: Yes (Hospitalization, Other)
  Sender: FDA-Public Use
  Company Number: 2005BI008488

PATIENT
  Sex: Female

DRUGS (1)
  1. AVONEX [Suspect]
     Indication: MULTIPLE SCLEROSIS
     Dosage: 30 UG; QW;IM
     Route: 030
     Dates: start: 20040801

REACTIONS (2)
  - HEPATIC NECROSIS [None]
  - SOMATOFORM DISORDER [None]
